FAERS Safety Report 8123284-5 (Version None)
Quarter: 2012Q1

REPORT INFORMATION
  Report Type: 
  Country: None (occurrence: None)
  Receive Date: 20120208
  Receipt Date: 20120125
  Transmission Date: 20120608
  Serious: No
  Sender: FDA-Public Use
  Company Number: US-BAYER-2012-009649

PATIENT
  Age: 69 Year
  Sex: Female
  Weight: 52 kg

DRUGS (6)
  1. ASPIRIN [Suspect]
     Dosage: 1 U, TID
     Route: 048
     Dates: start: 19920101, end: 20120101
  2. ASPIRIN [Suspect]
     Dosage: 1 U, TID
     Route: 048
     Dates: start: 20120101
  3. LUTEIN [Concomitant]
  4. TPN [Concomitant]
  5. MULTI-VITAMINS [Concomitant]
     Dosage: UNK
     Route: 048
  6. ASPERCREME [Concomitant]

REACTIONS (4)
  - REGURGITATION [None]
  - OESOPHAGEAL IRRITATION [None]
  - GASTROINTESTINAL TRACT IRRITATION [None]
  - DYSPEPSIA [None]
